FAERS Safety Report 13699257 (Version 3)
Quarter: 2019Q4

REPORT INFORMATION
  Report Type: Spontaneous
  Country: BE (occurrence: BE)
  Receive Date: 20170628
  Receipt Date: 20191218
  Transmission Date: 20200122
  Serious: Yes (Other)
  Sender: FDA-Public Use
  Company Number: BE-BAUSCH-BL-2017-019916

PATIENT
  Age: 61 Year
  Sex: Male

DRUGS (23)
  1. CYCLOPHOSPHAMIDE. [Suspect]
     Active Substance: CYCLOPHOSPHAMIDE
     Indication: HAEMATOPOIETIC STEM CELL MOBILISATION
     Dosage: HIGH DOSE
     Route: 065
  2. VINCRISTINE [Suspect]
     Active Substance: VINCRISTINE
     Indication: NON-HODGKIN^S LYMPHOMA
     Dosage: R-CHOP
     Route: 065
  3. PREDNISONE. [Suspect]
     Active Substance: PREDNISONE
     Indication: NON-HODGKIN^S LYMPHOMA
     Dosage: R-CHOP
     Route: 065
  4. RITUXIMAB. [Suspect]
     Active Substance: RITUXIMAB
     Dosage: R-DHAP, 1 CYCLICAL
     Route: 065
  5. RITUXIMAB. [Suspect]
     Active Substance: RITUXIMAB
     Dosage: R-ICE
     Route: 065
  6. CYTARABINE. [Suspect]
     Active Substance: CYTARABINE
     Indication: NON-HODGKIN^S LYMPHOMA
     Dosage: R-DHAP; CYCLICAL
     Route: 065
  7. CYTARABINE. [Suspect]
     Active Substance: CYTARABINE
     Dosage: 2 X 100 MG/M2 ON DAY 2,3,4,5, CYCLICAL
     Route: 065
  8. BIS-CHLOROETHYLNITROSOUREA (CARMUSTINE) [Suspect]
     Active Substance: CARMUSTINE
     Indication: NON-HODGKIN^S LYMPHOMA
     Dosage: ON DAY 1, CYCLICAL
     Route: 065
  9. RITUXIMAB. [Suspect]
     Active Substance: RITUXIMAB
     Indication: NON-HODGKIN^S LYMPHOMA
     Dosage: R-CHOP
     Route: 065
  10. CISPLATIN. [Suspect]
     Active Substance: CISPLATIN
     Indication: NON-HODGKIN^S LYMPHOMA
     Dosage: R-DHAP, CYCLICAL
     Route: 065
  11. AMLODIPINE [Concomitant]
     Active Substance: AMLODIPINE BESYLATE
     Indication: HYPERTENSION
  12. DOXORUBICIN [Suspect]
     Active Substance: DOXORUBICIN
     Indication: NON-HODGKIN^S LYMPHOMA
     Dosage: R-CHOP
     Route: 065
  13. CYTARABINE. [Suspect]
     Active Substance: CYTARABINE
     Dosage: 2 X 200 MG/M2 ON DAY 2 TO 5; CYCLICAL
     Route: 065
  14. DEXAMETHASONE. [Suspect]
     Active Substance: DEXAMETHASONE
     Indication: NON-HODGKIN^S LYMPHOMA
     Dosage: R-DHAP, CYCLICAL AS SECOND LINE THERAPY
     Route: 065
  15. ETOPOSIDE. [Suspect]
     Active Substance: ETOPOSIDE
     Dosage: ON DAY 2 TO 5, CYCLICAL
     Route: 065
  16. CYCLOPHOSPHAMIDE. [Suspect]
     Active Substance: CYCLOPHOSPHAMIDE
     Indication: NON-HODGKIN^S LYMPHOMA
     Dosage: R-CHOP
     Route: 065
  17. IFOSFAMIDE. [Suspect]
     Active Substance: IFOSFAMIDE
     Indication: NON-HODGKIN^S LYMPHOMA
     Dosage: R-ICE
     Route: 065
  18. ETOPOSIDE. [Suspect]
     Active Substance: ETOPOSIDE
     Indication: NON-HODGKIN^S LYMPHOMA
     Dosage: R-ICE
     Route: 065
  19. BIS-CHLOROETHYLNITROSOUREA (CARMUSTINE) [Suspect]
     Active Substance: CARMUSTINE
     Dosage: ON DAY 1, CYCLICAL
     Route: 065
  20. MELPHALAN. [Suspect]
     Active Substance: MELPHALAN
     Dosage: ON DAY 2 TO 6, CYCLICAL
     Route: 065
  21. CARBOPLATIN. [Suspect]
     Active Substance: CARBOPLATIN
     Indication: NON-HODGKIN^S LYMPHOMA
     Dosage: R-ICE
     Route: 065
  22. ETOPOSIDE. [Suspect]
     Active Substance: ETOPOSIDE
     Dosage: ON DAY 2 TO 5, CYCLICAL
     Route: 065
  23. MELPHALAN. [Suspect]
     Active Substance: MELPHALAN
     Indication: NON-HODGKIN^S LYMPHOMA
     Dosage: ON DAY 6, CYCLICAL
     Route: 065

REACTIONS (3)
  - Human herpesvirus 8 infection [Recovered/Resolved]
  - Kaposi^s sarcoma [Recovered/Resolved]
  - Tinnitus [Unknown]
